FAERS Safety Report 19153127 (Version 1)
Quarter: 2021Q2

REPORT INFORMATION
  Report Type: Spontaneous
  Country: FR (occurrence: FR)
  Receive Date: 20210419
  Receipt Date: 20210419
  Transmission Date: 20210717
  Serious: Yes (Hospitalization, Other)
  Sender: FDA-Public Use
  Company Number: FR-SUN PHARMACEUTICAL INDUSTRIES LTD-2021RR-291949

PATIENT
  Age: 29 Year
  Sex: Male

DRUGS (12)
  1. TRAMADOL. [Suspect]
     Active Substance: TRAMADOL
     Indication: PRODUCT USED FOR UNKNOWN INDICATION
     Dosage: (1)IN TOTAL
     Route: 048
     Dates: start: 20200801, end: 20200801
  2. TANGANIL [Suspect]
     Active Substance: ACETYLLEUCINE, L-
     Indication: PRODUCT USED FOR UNKNOWN INDICATION
     Dosage: (1)IN TOTAL
     Route: 048
     Dates: start: 20200801, end: 20200801
  3. ESOMEPRAZOLE. [Concomitant]
     Active Substance: ESOMEPRAZOLE MAGNESIUM
     Indication: PRODUCT USED FOR UNKNOWN INDICATION
     Dosage: UNK
     Route: 065
  4. PRIMPERAN [Suspect]
     Active Substance: METOCLOPRAMIDE HYDROCHLORIDE
     Indication: PRODUCT USED FOR UNKNOWN INDICATION
     Dosage: (1)IN TOTAL
     Route: 048
     Dates: start: 20200801, end: 20200801
  5. KETOPROFENE [Suspect]
     Active Substance: KETOPROFEN
     Dosage: (1)IN TOTAL
     Route: 048
     Dates: start: 20200801, end: 20200801
  6. KETOPROFENE [Suspect]
     Active Substance: KETOPROFEN
     Indication: PRODUCT USED FOR UNKNOWN INDICATION
     Dosage: (1)IN TOTAL
     Route: 048
     Dates: start: 20200801, end: 20200801
  7. OXYCODONE [Suspect]
     Active Substance: OXYCODONE
     Indication: PRODUCT USED FOR UNKNOWN INDICATION
     Dosage: (1)IN TOTAL
     Route: 048
     Dates: start: 20200801, end: 20200801
  8. TRAMADOL. [Suspect]
     Active Substance: TRAMADOL
     Dosage: (1)IN TOTAL
     Route: 048
     Dates: start: 20200801, end: 20200801
  9. HYDROXYZINE (CHLORHYDRATE D^) [Suspect]
     Active Substance: HYDROXYZINE HYDROCHLORIDE
     Indication: PRODUCT USED FOR UNKNOWN INDICATION
     Dosage: (1)IN TOTAL
     Route: 048
     Dates: start: 20200801, end: 20200801
  10. TANGANIL [Suspect]
     Active Substance: ACETYLLEUCINE, L-
     Dosage: (1)IN TOTAL
     Route: 048
     Dates: start: 20200801, end: 20200801
  11. PRIMPERAN [Suspect]
     Active Substance: METOCLOPRAMIDE HYDROCHLORIDE
     Dosage: (1)IN TOTAL
     Route: 048
     Dates: start: 20200801, end: 20200801
  12. HYDROXYZINE (CHLORHYDRATE D^) [Suspect]
     Active Substance: HYDROXYZINE HYDROCHLORIDE
     Dosage: (1)IN TOTAL
     Route: 048
     Dates: start: 20200801, end: 20200801

REACTIONS (4)
  - Oxygen saturation decreased [Recovered/Resolved]
  - Suicide attempt [Unknown]
  - Toxicity to various agents [Recovered/Resolved]
  - Miosis [Recovered/Resolved]

NARRATIVE: CASE EVENT DATE: 20200801
